FAERS Safety Report 10795968 (Version 1)
Quarter: 2015Q1

REPORT INFORMATION
  Report Type: Report from Study
  Country: US (occurrence: US)
  Receive Date: 20150216
  Receipt Date: 20150216
  Transmission Date: 20150721
  Serious: Yes (Death)
  Sender: FDA-Public Use
  Company Number: US-ROCHE-1537744

PATIENT
  Age: 60 Year
  Sex: Male
  Weight: 72.7 kg

DRUGS (3)
  1. DOCETAXEL. [Suspect]
     Active Substance: DOCETAXEL
     Indication: SQUAMOUS CELL CARCINOMA OF HEAD AND NECK
     Dosage: OVER 1 HOUR?LAST DOSE 109 MG WAS ADMINISTERED ON 14/JAN/2015
     Route: 042
     Dates: start: 20141119
  2. CARBOPLATIN. [Suspect]
     Active Substance: CARBOPLATIN
     Indication: SQUAMOUS CELL CARCINOMA OF HEAD AND NECK
     Dosage: AUC 6 OVER 30 MINUTES?LAST DOSE 625 MG WAS ADMINISTERED ON 14/JAN/2015
     Route: 042
     Dates: start: 20141119
  3. BEVACIZUMAB [Suspect]
     Active Substance: BEVACIZUMAB
     Indication: SQUAMOUS CELL CARCINOMA OF HEAD AND NECK
     Dosage: OVER 30 TO 90 MINUTES; LAST DOSE 1178 MG WAS ADMINISTERED ON 14/JAN/2015.
     Route: 042
     Dates: start: 20141119

REACTIONS (1)
  - Sepsis [Fatal]

NARRATIVE: CASE EVENT DATE: 20150123
